FAERS Safety Report 22653921 (Version 5)
Quarter: 2023Q4

REPORT INFORMATION
  Report Type: Report from Study
  Country: US (occurrence: US)
  Receive Date: 20230629
  Receipt Date: 20231106
  Transmission Date: 20240109
  Serious: Yes (Other)
  Sender: FDA-Public Use
  Company Number: US-UCBSA-2023032822

PATIENT
  Age: 18 Year
  Sex: Female
  Weight: 47 kg

DRUGS (8)
  1. FINTEPLA [Suspect]
     Active Substance: FENFLURAMINE
     Indication: Epilepsy
     Dosage: UNK
     Dates: start: 20200903
  2. FINTEPLA [Suspect]
     Active Substance: FENFLURAMINE
     Indication: Off label use
     Dosage: 0.4 MILLIGRAM/KILOGRAM 6ML
  3. FINTEPLA [Suspect]
     Active Substance: FENFLURAMINE
     Indication: Severe myoclonic epilepsy of infancy
     Dosage: 0.4 MILLIGRAM/KILOGRAM
  4. FINTEPLA [Suspect]
     Active Substance: FENFLURAMINE
     Dosage: 0.51 MILLIGRAM/KILOGRAM
  5. FINTEPLA [Suspect]
     Active Substance: FENFLURAMINE
     Dosage: 0.57 MILLIGRAM/KILOGRAM, TAKE BY MOUTH 6 ML TWICE DAILY
  6. FINTEPLA [Suspect]
     Active Substance: FENFLURAMINE
     Dosage: 0.4 MILLIGRAM/KILOGRAM
  7. FINTEPLA [Suspect]
     Active Substance: FENFLURAMINE
     Dosage: 0.55 MILLIGRAM/KILOGRAM, TAKE 6ML BY MOUTH TWICE A DAY
     Route: 048
  8. FINTEPLA [Suspect]
     Active Substance: FENFLURAMINE
     Dosage: 6 MILLILITER, 2X/DAY (BID)
     Dates: end: 20231027

REACTIONS (4)
  - Mitral valve incompetence [Not Recovered/Not Resolved]
  - Seizure [Recovered/Resolved]
  - Off label use [Unknown]
  - Therapeutic response decreased [Unknown]

NARRATIVE: CASE EVENT DATE: 20230621
